FAERS Safety Report 12325982 (Version 2)
Quarter: 2016Q3

REPORT INFORMATION
  Report Type: Spontaneous
  Country: US (occurrence: US)
  Receive Date: 20160503
  Receipt Date: 20160929
  Transmission Date: 20161109
  Serious: Yes (Other)
  Sender: FDA-Public Use
  Company Number: US-PFIZER INC-2016224216

PATIENT
  Age: 46 Year
  Sex: Female
  Weight: 144.2 kg

DRUGS (18)
  1. MELOXICAM. [Concomitant]
     Active Substance: MELOXICAM
     Indication: ARTHRALGIA
  2. VOLTAREN [Concomitant]
     Active Substance: DICLOFENAC SODIUM
     Indication: ARTHRITIS
     Dosage: 5% GEL APPLIED THREE TIMES DAILY/SOMETIMES SHE DOES NOT APPLY IT THREE TIMES DAILY
  3. MELOXICAM. [Concomitant]
     Active Substance: MELOXICAM
     Indication: ARTHRITIS
     Dosage: 7.5MG TABLET TWICE DAILY
     Dates: start: 201603
  4. LYRICA [Suspect]
     Active Substance: PREGABALIN
     Dosage: 150MG CAPSULE, TWO IN THE MORNING AND TWO AT NIGHT
  5. VITAMIN D [Concomitant]
     Active Substance: CHOLECALCIFEROL
     Indication: SUPPLEMENTATION THERAPY
     Dosage: 50,000 UNITS ONCE DAILY
     Dates: start: 2011
  6. CYMBALTA [Concomitant]
     Active Substance: DULOXETINE HYDROCHLORIDE
     Indication: PAIN
     Dosage: ONE 30MG AND ONE 60MG CAPSULE DAILY
     Dates: start: 201401
  7. VITAMIN D [Concomitant]
     Active Substance: CHOLECALCIFEROL
     Indication: VITAMIN D DECREASED
  8. LYRICA [Suspect]
     Active Substance: PREGABALIN
     Indication: COMPLEX REGIONAL PAIN SYNDROME
     Dosage: UNK
  9. LOSARTAN/HCTZ [Concomitant]
     Active Substance: HYDROCHLOROTHIAZIDE\LOSARTAN
     Indication: BLOOD PRESSURE ABNORMAL
     Dosage: [LOSARTAN POTASSIUM 100MG]/[HYDROCHLOROTHIAZIDE 12.5MG],  DAILY
     Dates: start: 201401
  10. OXYCODONE [Concomitant]
     Active Substance: OXYCODONE
     Indication: MENISCUS INJURY
     Dosage: 20MG TABLET TWICE DAILY
  11. VOLTAREN [Concomitant]
     Active Substance: DICLOFENAC SODIUM
     Indication: ARTHRALGIA
  12. ATORVASTATIN [Concomitant]
     Active Substance: ATORVASTATIN
     Indication: BLOOD CHOLESTEROL ABNORMAL
     Dosage: 10MG TABLET ONCE DAILY
     Dates: start: 201401
  13. FOSAMAX [Concomitant]
     Active Substance: ALENDRONATE SODIUM
     Indication: COMPLEX REGIONAL PAIN SYNDROME
     Dosage: 35MG TABLET ONCE WEEKLY
     Dates: start: 201603
  14. VOLTAREN [Concomitant]
     Active Substance: DICLOFENAC SODIUM
     Indication: TENDONITIS
  15. CLONAZEPAM. [Concomitant]
     Active Substance: CLONAZEPAM
     Indication: ANXIETY
     Dosage: 1MG TABLET THREE TIMES DAILY
     Dates: start: 201509
  16. OXYCODONE [Concomitant]
     Active Substance: OXYCODONE
     Indication: LIGAMENT RUPTURE
  17. VITAMIN D [Concomitant]
     Active Substance: CHOLECALCIFEROL
     Indication: CHEST PAIN
  18. VITAMIN D [Concomitant]
     Active Substance: CHOLECALCIFEROL
     Indication: FEELING ABNORMAL

REACTIONS (15)
  - Movement disorder [Recovered/Resolved]
  - Meniscus injury [Unknown]
  - Ligament rupture [Unknown]
  - Dizziness [Recovered/Resolved]
  - Dizziness [Unknown]
  - Feeling drunk [Unknown]
  - Apathy [Recovered/Resolved]
  - Feeling abnormal [Recovered/Resolved]
  - Nausea [Recovered/Resolved]
  - Aphasia [Unknown]
  - Influenza like illness [Recovered/Resolved]
  - Restlessness [Recovered/Resolved]
  - Insomnia [Recovered/Resolved]
  - Weight increased [Not Recovered/Not Resolved]
  - Withdrawal syndrome [Recovered/Resolved]

NARRATIVE: CASE EVENT DATE: 201512
